FAERS Safety Report 24872927 (Version 3)
Quarter: 2025Q2

REPORT INFORMATION
  Report Type: Spontaneous
  Country: US (occurrence: US)
  Receive Date: 20250122
  Receipt Date: 20250529
  Transmission Date: 20250716
  Serious: Yes (Hospitalization, Other)
  Sender: CHATTEM
  Company Number: US-OPELLA-2025OHG001654

PATIENT
  Age: 41 Year
  Sex: Male

DRUGS (1)
  1. GOLD BOND ORIGINAL STRENGTH [Suspect]
     Active Substance: MENTHOL
     Indication: Product used for unknown indication
     Route: 065

REACTIONS (3)
  - Pleural mesothelioma malignant [Unknown]
  - Epithelioid mesothelioma [Unknown]
  - Peritoneal mesothelioma malignant [Unknown]

NARRATIVE: CASE EVENT DATE: 20240403
